FAERS Safety Report 14282224 (Version 1)
Quarter: 2017Q4

REPORT INFORMATION
  Report Type: Report from Study
  Country: MX (occurrence: MX)
  Receive Date: 20171213
  Receipt Date: 20171213
  Transmission Date: 20180321
  Serious: Yes (Other)
  Sender: FDA-Public Use
  Company Number: MX-TEVA-2017-MX-830445

PATIENT
  Age: 73 Year
  Sex: Female

DRUGS (1)
  1. AZILECT [Suspect]
     Active Substance: RASAGILINE MESYLATE
     Indication: PARKINSON^S DISEASE
     Dosage: 1 MILLIGRAM DAILY;
     Route: 048
     Dates: start: 20131119

REACTIONS (2)
  - Cardiac pacemaker insertion [Recovered/Resolved]
  - Cranial operation [Recovered/Resolved]

NARRATIVE: CASE EVENT DATE: 20171011
